FAERS Safety Report 8829445 (Version 1)
Quarter: 2012Q4

REPORT INFORMATION
  Report Type: 
  Country: None (occurrence: US)
  Receive Date: 20121008
  Receipt Date: 20121008
  Transmission Date: 20130627
  Serious: No
  Sender: FDA-Public Use
  Company Number: US-TEVA-344538USA

PATIENT
  Sex: Female
  Weight: 72.64 kg

DRUGS (2)
  1. QVAR [Suspect]
     Indication: ASTHMA
     Dosage: 160 Microgram Daily;
     Dates: end: 201203
  2. SYNTHROID [Concomitant]
     Indication: HYPOTHYROIDISM
     Dosage: 125 Microgram Daily;
     Route: 048

REACTIONS (1)
  - Asthma [Recovered/Resolved]
